FAERS Safety Report 4338128-7 (Version None)
Quarter: 2004Q2

REPORT INFORMATION
  Report Type: 
  Country: None (occurrence: None)
  Receive Date: 20040412
  Receipt Date: 20040412
  Transmission Date: 20050107
  Serious: Yes (Other)
  Sender: FDA-Public Use
  Company Number: None

PATIENT
  Age: 66 Year
  Sex: Female

DRUGS (1)
  1. KEPPRA [Suspect]
     Indication: CONVULSION
     Dosage: 500MG BID ORAL
     Route: 048
     Dates: start: 20031104, end: 20031210

REACTIONS (3)
  - DIZZINESS [None]
  - FALL [None]
  - LIPASE INCREASED [None]
